FAERS Safety Report 22222306 (Version 3)
Quarter: 2023Q2

REPORT INFORMATION
  Report Type: Spontaneous
  Country: US (occurrence: US)
  Receive Date: 20230418
  Receipt Date: 20230531
  Transmission Date: 20230721
  Serious: No
  Sender: FDA-Public Use
  Company Number: US-UNITED THERAPEUTICS-UNT-2023-010616

PATIENT
  Sex: Male
  Weight: 18.141 kg

DRUGS (4)
  1. REMODULIN [Suspect]
     Active Substance: TREPROSTINIL
     Indication: Pulmonary arterial hypertension
     Dosage: 0.015 ?G/KG (SELF-FILLED WITH 1.8 ML/CASSETTE; RATE OF 18 MCL/HOUR), CONTINUING
     Route: 058
  2. REMODULIN [Suspect]
     Active Substance: TREPROSTINIL
     Dosage: 0.017 ?G/KG (SELF-FILL CASSETTE WITH 1.9 ML AT A RATE OF 20 MCL/HOUR), CONTINUING
     Route: 058
  3. REMODULIN [Suspect]
     Active Substance: TREPROSTINIL
     Dosage: UNK, CONTINUING
     Route: 058
     Dates: start: 20230308
  4. SILDENAFIL [Concomitant]
     Active Substance: SILDENAFIL
     Indication: Product used for unknown indication
     Dosage: UNK
     Route: 065

REACTIONS (11)
  - Device failure [Recovered/Resolved]
  - Device leakage [Recovered/Resolved]
  - Device wireless communication issue [Recovered/Resolved]
  - Infusion site rash [Unknown]
  - Dermatitis contact [Unknown]
  - Gastrooesophageal reflux disease [Unknown]
  - Vomiting [Unknown]
  - Unintentional medical device removal [Unknown]
  - Infusion site mass [Unknown]
  - Infusion site erythema [Unknown]
  - Hypersensitivity [Unknown]
